FAERS Safety Report 5795368-8 (Version None)
Quarter: 2008Q2

REPORT INFORMATION
  Report Type: 
  Country: None (occurrence: None)
  Receive Date: 20080601
  Receipt Date: 20080124
  Transmission Date: 20081010
  Serious: No
  Sender: FDA-Public Use
  Company Number: US200801005398

PATIENT
  Age: 45 Year
  Sex: Female

DRUGS (5)
  1. BYETTA [Suspect]
     Indication: TYPE 2 DIABETES MELLITUS
     Dosage: 5 UG, 2/D, SUBCUTANEOUS : 5 U, 2/D, SUBCUTANEOUS
     Route: 058
     Dates: start: 20071201
  2. BYETTA [Suspect]
     Indication: TYPE 2 DIABETES MELLITUS
     Dosage: 5 UG, 2/D, SUBCUTANEOUS : 5 U, 2/D, SUBCUTANEOUS
     Route: 058
     Dates: start: 20071201
  3. LANTUS [Concomitant]
  4. DRUG USE IN DIABETES [Concomitant]
  5. NOVOLOG [Concomitant]

REACTIONS (5)
  - ACCIDENTAL OVERDOSE [None]
  - DRUG ADMINISTRATION ERROR [None]
  - INCORRECT DOSE ADMINISTERED [None]
  - PRURITUS GENERALISED [None]
  - RASH GENERALISED [None]
